FAERS Safety Report 8097603-2 (Version None)
Quarter: 2012Q1

REPORT INFORMATION
  Report Type: 
  Country: None (occurrence: None)
  Receive Date: 20120128
  Receipt Date: 20110620
  Transmission Date: 20120608
  Serious: No
  Sender: FDA-Public Use
  Company Number: US-ABBOTT-11P-163-0733836-00

PATIENT
  Age: 56 Year
  Sex: Female

DRUGS (11)
  1. LANTUS [Concomitant]
     Indication: TYPE 2 DIABETES MELLITUS
     Dosage: DAILY
  2. CYMBALTA [Concomitant]
     Indication: PAIN
     Dosage: DAILY
  3. OMEPRAZOLE [Concomitant]
     Indication: PROPHYLAXIS AGAINST GASTROINTESTINAL ULCER
     Dosage: DAILY
  4. LORAZEPAM [Concomitant]
     Indication: FEELING OF RELAXATION
  5. FOLIC ACID [Concomitant]
     Indication: SUPPLEMENTATION THERAPY
     Dosage: DAILY
  6. LORAZEPAM [Concomitant]
     Indication: PAIN
     Dosage: DAILY
  7. HUMIRA [Suspect]
     Indication: PSORIATIC ARTHROPATHY
     Dates: start: 20110530
  8. METFORMIN HCL [Concomitant]
     Indication: TYPE 2 DIABETES MELLITUS
     Dosage: 4 PILLS DAILY
  9. PREDNISONE TAB [Concomitant]
     Indication: PSORIATIC ARTHROPATHY
     Dosage: DAILY
  10. TEMAZEMPAM [Concomitant]
     Indication: INSOMNIA
     Dosage: DAILY
  11. AXERT [Concomitant]
     Indication: MIGRAINE
     Dosage: DAILY

REACTIONS (1)
  - PAIN [None]
